FAERS Safety Report 6711086-3 (Version None)
Quarter: 2010Q2

REPORT INFORMATION
  Report Type: 
  Country: None (occurrence: None)
  Receive Date: 20100505
  Receipt Date: 20091021
  Transmission Date: 20101027
  Serious: No
  Sender: FDA-Public Use
  Company Number: US-KINGPHARMUSA00001-K200901304

PATIENT
  Sex: Female
  Weight: 52.154 kg

DRUGS (8)
  1. AVINZA [Suspect]
     Indication: OSTEONECROSIS
     Dosage: UNK
     Route: 048
     Dates: start: 20070101, end: 20080101
  2. AVINZA [Suspect]
     Dosage: 180 MG, BID
     Dates: start: 20080101, end: 20080101
  3. AVINZA [Suspect]
     Dosage: 90 MG, BID
     Dates: start: 20080101
  4. LIPITOR [Concomitant]
     Indication: BLOOD CHOLESTEROL INCREASED
     Dosage: UNK
  5. COUMADIN [Concomitant]
     Dosage: UNK
  6. RITALIN [Concomitant]
     Indication: FEELING ABNORMAL
     Dosage: QAM
  7. VITAMIN D [Concomitant]
     Dosage: 2000 U, QD
  8. ALBUTEROL [Concomitant]
     Indication: ASTHMA
     Dosage: UNK

REACTIONS (2)
  - DRUG INEFFECTIVE [None]
  - WITHDRAWAL SYNDROME [None]
